FAERS Safety Report 6006146-9 (Version None)
Quarter: 2008Q4

REPORT INFORMATION
  Report Type: 
  Country: None (occurrence: None)
  Receive Date: 20081217
  Receipt Date: 20080709
  Transmission Date: 20090506
  Serious: No
  Sender: FDA-Public Use
  Company Number: US-BAUSCH-2008BL003081

PATIENT
  Age: 69 Year
  Sex: Female
  Weight: 72 kg

DRUGS (4)
  1. ZYLET [Suspect]
     Indication: EYE INFECTION
     Route: 047
     Dates: start: 20080702, end: 20080704
  2. ZYLET [Suspect]
     Route: 047
     Dates: start: 20080708, end: 20080701
  3. FISH OIL [Concomitant]
     Indication: VITAMIN SUPPLEMENTATION
  4. CALCIUM [Concomitant]
     Indication: MINERAL SUPPLEMENTATION

REACTIONS (1)
  - HEADACHE [None]
